FAERS Safety Report 16320857 (Version 1)
Quarter: 2019Q2

REPORT INFORMATION
  Report Type: Spontaneous
  Country: US (occurrence: US)
  Receive Date: 20190411
  Receipt Date: 20190411
  Transmission Date: 20190711
  Serious: No
  Sender: FDA-Public Use
  Company Number: None

PATIENT
  Age: 20 Year
  Sex: Male
  Weight: 106.14 kg

DRUGS (1)
  1. ENBREL [Suspect]
     Active Substance: ETANERCEPT
     Indication: PSORIASIS
     Dosage: ?          OTHER FREQUENCY:TID 72-96HOURS;?
     Route: 058
     Dates: start: 201812

REACTIONS (2)
  - Cyst [None]
  - Dizziness [None]
